FAERS Safety Report 11030310 (Version 1)
Quarter: 2015Q2

REPORT INFORMATION
  Report Type: Spontaneous
  Country: US (occurrence: None)
  Receive Date: 20150406
  Receipt Date: 20150406
  Transmission Date: 20150821
  Serious: Yes (Other)
  Sender: FDA-Public Use
  Company Number: ID NR. 2789_SP

PATIENT
  Sex: Female

DRUGS (1)
  1. ZOLEDRONIC ACID INJECTION [Suspect]
     Active Substance: ZOLEDRONIC ACID
     Indication: OSTEOPOROSIS
     Route: 042
     Dates: start: 20141224, end: 20141224

REACTIONS (3)
  - Bone pain [None]
  - Back pain [None]
  - Flank pain [None]

NARRATIVE: CASE EVENT DATE: 20141224
